FAERS Safety Report 24867431 (Version 1)
Quarter: 2025Q1

REPORT INFORMATION
  Report Type: Spontaneous
  Country: FR (occurrence: FR)
  Receive Date: 20250121
  Receipt Date: 20250121
  Transmission Date: 20250409
  Serious: Yes (Hospitalization)
  Sender: CHEPLAPHARM
  Company Number: None

PATIENT
  Age: 21 Year
  Sex: Female
  Weight: 44 kg

DRUGS (9)
  1. OLANZAPINE [Suspect]
     Active Substance: OLANZAPINE
     Route: 048
     Dates: start: 20241225, end: 20241225
  2. QUETIAPINE [Suspect]
     Active Substance: QUETIAPINE
     Route: 048
     Dates: start: 20241225, end: 20241225
  3. MIRTAZAPINE [Suspect]
     Active Substance: MIRTAZAPINE
     Route: 048
     Dates: start: 20241225, end: 20241225
  4. PRAZOSIN HYDROCHLORIDE [Suspect]
     Active Substance: PRAZOSIN HYDROCHLORIDE
     Route: 048
     Dates: start: 20241225, end: 20241225
  5. CHLORPROMAZINE [Suspect]
     Active Substance: CHLORPROMAZINE
     Route: 048
     Dates: start: 20241225, end: 20241225
  6. PROPRANOLOL [Suspect]
     Active Substance: PROPRANOLOL HYDROCHLORIDE
     Route: 048
     Dates: start: 20241225, end: 20241225
  7. LEVOMEPROMAZINE [Suspect]
     Active Substance: LEVOMEPROMAZINE
     Route: 048
     Dates: start: 20241225, end: 20241225
  8. KETAMINE [Suspect]
     Active Substance: KETAMINE
     Dates: start: 20241225
  9. COCAINE [Suspect]
     Active Substance: COCAINE
     Dates: start: 20241225

REACTIONS (5)
  - Coma [Recovered/Resolved]
  - Seizure [Recovered/Resolved]
  - Poisoning deliberate [Unknown]
  - Sinus tachycardia [Recovered/Resolved]
  - Anxiety [Unknown]

NARRATIVE: CASE EVENT DATE: 20241225
